FAERS Safety Report 12610362 (Version 3)
Quarter: 2016Q4

REPORT INFORMATION
  Report Type: Spontaneous
  Country: US (occurrence: US)
  Receive Date: 20160801
  Receipt Date: 20161005
  Transmission Date: 20170207
  Serious: Yes (Hospitalization, Other)
  Sender: FDA-Public Use
  Company Number: US-GLAXOSMITHKLINE-US2016109845

PATIENT
  Age: 54 Year
  Sex: Female

DRUGS (20)
  1. BREO ELLIPTA [Concomitant]
     Active Substance: FLUTICASONE FUROATE\VILANTEROL TRIFENATATE
     Indication: ASTHMA
  2. BREO ELLIPTA [Concomitant]
     Active Substance: FLUTICASONE FUROATE\VILANTEROL TRIFENATATE
     Indication: CHRONIC OBSTRUCTIVE PULMONARY DISEASE
  3. ATORVASTATIN [Concomitant]
     Active Substance: ATORVASTATIN
  4. DUONEB [Concomitant]
     Active Substance: ALBUTEROL SULFATE\IPRATROPIUM BROMIDE
  5. METFORMIN [Concomitant]
     Active Substance: METFORMIN HYDROCHLORIDE
  6. VIIBRYD [Concomitant]
     Active Substance: VILAZODONE HYDROCHLORIDE
  7. LAMICTAL [Suspect]
     Active Substance: LAMOTRIGINE
     Indication: DEPRESSION
     Dosage: 300 MG, QD
     Route: 048
     Dates: start: 201308
  8. OXYGEN. [Concomitant]
     Active Substance: OXYGEN
  9. LYRICA [Concomitant]
     Active Substance: PREGABALIN
  10. PREVACID [Concomitant]
     Active Substance: LANSOPRAZOLE
  11. PANTOPRAZOLE [Concomitant]
     Active Substance: PANTOPRAZOLE SODIUM
  12. AMERGE [Concomitant]
     Active Substance: NARATRIPTAN HYDROCHLORIDE
  13. LORATIDINE [Concomitant]
     Active Substance: LORATADINE
  14. METOPROLOL. [Concomitant]
     Active Substance: METOPROLOL
  15. PREDNISONE. [Concomitant]
     Active Substance: PREDNISONE
  16. VERAPAMIL [Concomitant]
     Active Substance: VERAPAMIL HYDROCHLORIDE
  17. XOPENEX [Concomitant]
     Active Substance: LEVALBUTEROL HYDROCHLORIDE
  18. ZYPREXA [Concomitant]
     Active Substance: OLANZAPINE
  19. LAMICTAL [Suspect]
     Active Substance: LAMOTRIGINE
     Indication: SEIZURE
  20. ATIVAN [Concomitant]
     Active Substance: LORAZEPAM

REACTIONS (15)
  - Hypokalaemia [Recovered/Resolved]
  - Dyspnoea [Not Recovered/Not Resolved]
  - Acute respiratory failure [Not Recovered/Not Resolved]
  - Tachypnoea [Not Recovered/Not Resolved]
  - Mental status changes [Recovered/Resolved]
  - Metabolic encephalopathy [Recovered/Resolved]
  - Toxic encephalopathy [Recovered/Resolved]
  - Lung disorder [Unknown]
  - Headache [Recovering/Resolving]
  - Rehabilitation therapy [Unknown]
  - Confusional state [Recovered/Resolved]
  - Chronic respiratory failure [Unknown]
  - Tachycardia [Not Recovered/Not Resolved]
  - Hypoxia [Not Recovered/Not Resolved]
  - Respiratory distress [Unknown]

NARRATIVE: CASE EVENT DATE: 20160618
